FAERS Safety Report 7298429-X (Version None)
Quarter: 2011Q1

REPORT INFORMATION
  Report Type: 
  Country: None (occurrence: None)
  Receive Date: 20110217
  Receipt Date: 20110211
  Transmission Date: 20110831
  Serious: Yes (Other)
  Sender: FDA-Public Use
  Company Number: GB-JNJFOC-20101208320

PATIENT
  Age: 30 Year
  Sex: Female

DRUGS (3)
  1. HYDROCORTISONE [Concomitant]
     Indication: PREMEDICATION
     Route: 042
  2. INFLIXIMAB, RECOMBINANT [Suspect]
     Indication: CROHN'S DISEASE
     Route: 042
  3. INFLIXIMAB, RECOMBINANT [Suspect]
     Route: 042

REACTIONS (16)
  - CHEST DISCOMFORT [None]
  - HEADACHE [None]
  - INFUSION RELATED REACTION [None]
  - HYPOTENSION [None]
  - FACE OEDEMA [None]
  - FLUSHING [None]
  - CHEST PAIN [None]
  - PYREXIA [None]
  - RASH [None]
  - DRUG EXPOSURE DURING PREGNANCY [None]
  - PALPITATIONS [None]
  - HYPERTENSION [None]
  - DYSPNOEA [None]
  - OROPHARYNGEAL PAIN [None]
  - TACHYCARDIA [None]
  - BRONCHOSPASM [None]
